FAERS Safety Report 12194745 (Version 1)
Quarter: 2016Q1

REPORT INFORMATION
  Report Type: Spontaneous
  Country: US (occurrence: US)
  Receive Date: 20160321
  Receipt Date: 20160321
  Transmission Date: 20160526
  Serious: Yes (Other)
  Sender: FDA-Public Use
  Company Number: US-BRAINTREE LABORATORIES-160216

PATIENT
  Age: 54 Year
  Sex: Male
  Weight: 95.25 kg

DRUGS (1)
  1. SUPREP BOWEL PREP [Suspect]
     Active Substance: MAGNESIUM SULFATE\POTASSIUM SULFATE\SODIUM SULFATE
     Indication: COLONOSCOPY
     Dosage: 2 X 6 OZ. BOTTLE
     Route: 048
     Dates: start: 20160229, end: 20160301

REACTIONS (3)
  - Blood creatinine increased [None]
  - Acute kidney injury [None]
  - Proctalgia [None]

NARRATIVE: CASE EVENT DATE: 20160302
